FAERS Safety Report 4456427-5 (Version None)
Quarter: 2004Q3

REPORT INFORMATION
  Report Type: 
  Country: None (occurrence: None)
  Receive Date: 20040830
  Receipt Date: 20040525
  Transmission Date: 20050211
  Serious: No
  Sender: FDA-Public Use
  Company Number: 206812

PATIENT
  Age: 54 Year
  Sex: Female

DRUGS (3)
  1. XOLAIR [Suspect]
     Dosage: 300 MG, Q4W, SUBCUTANEOUS; 300 MG, Q2W, SUBCUTANEOUS
     Route: 058
     Dates: start: 20030801
  2. XOLAIR [Suspect]
     Dosage: 300 MG, Q4W, SUBCUTANEOUS; 300 MG, Q2W, SUBCUTANEOUS
     Route: 058
     Dates: start: 20040501
  3. PREVACID [Concomitant]

REACTIONS (1)
  - GASTROOESOPHAGEAL REFLUX DISEASE [None]
